FAERS Safety Report 6248216-6 (Version None)
Quarter: 2009Q2

REPORT INFORMATION
  Report Type: 
  Country: None (occurrence: None)
  Receive Date: 20090629
  Receipt Date: 20090211
  Transmission Date: 20091009
  Serious: No
  Sender: FDA-Public Use
  Company Number: A0769207A

PATIENT

DRUGS (4)
  1. ALBUTEROL [Suspect]
     Indication: ASTHMA
     Route: 055
  2. ADVAIR HFA [Concomitant]
     Indication: ASTHMA
     Route: 055
  3. SINGULAIR [Concomitant]
     Indication: ASTHMA
     Route: 065
  4. SPIRIVA [Concomitant]
     Route: 065

REACTIONS (2)
  - INHALATION THERAPY [None]
  - MEDICATION ERROR [None]
